FAERS Safety Report 8949802 (Version 1)
Quarter: 2012Q4

REPORT INFORMATION
  Report Type: 
  Country: US (occurrence: US)
  Receive Date: 20121206
  Receipt Date: 20121206
  Transmission Date: 20130627
  Serious: No
  Sender: FDA-Public Use
  Company Number: US-PFIZER INC-2012306473

PATIENT
  Age: 74 Year
  Sex: Male
  Weight: 114 kg

DRUGS (3)
  1. CHANTIX [Suspect]
     Indication: SMOKING CESSATION THERAPY
     Dosage: 0.5 mg, daily
     Route: 048
     Dates: start: 201206, end: 201207
  2. CHANTIX [Suspect]
     Dosage: 0.5 mg, daily
     Dates: start: 201211, end: 201211
  3. CHANTIX [Suspect]
     Dosage: 1 mg, 2x/day
     Dates: start: 201211, end: 201211

REACTIONS (4)
  - Dyspnoea [Recovered/Resolved]
  - Abdominal discomfort [Recovered/Resolved]
  - Fatigue [Recovered/Resolved]
  - Somnolence [Recovered/Resolved]
